FAERS Safety Report 16154032 (Version 2)
Quarter: 2019Q3

REPORT INFORMATION
  Report Type: Spontaneous
  Country: JP (occurrence: JP)
  Receive Date: 20190403
  Receipt Date: 20190730
  Transmission Date: 20191004
  Serious: Yes (Death, Hospitalization, Other)
  Sender: FDA-Public Use
  Company Number: JP-SAKK-BA201306955001

PATIENT
  Age: 52 Year
  Sex: Female
  Weight: 61.6 kg

DRUGS (7)
  1. TAXOTERE [Suspect]
     Active Substance: DOCETAXEL
     Indication: BREAST CANCER
     Dosage: 60 MG/M2, Q3W
     Route: 041
     Dates: start: 20130617, end: 2013
  2. FLUOROURACIL. [Concomitant]
     Active Substance: FLUOROURACIL
     Indication: BREAST CANCER
     Dosage: 500 MG/M2
     Route: 065
     Dates: start: 20130204
  3. TAXOTERE [Suspect]
     Active Substance: DOCETAXEL
     Dosage: UNK UNK, Q3W
     Route: 041
     Dates: start: 2013, end: 20130906
  4. CYCLOPHOSPHAMIDE MONOHYDRATE [Concomitant]
     Active Substance: CYCLOPHOSPHAMIDE
     Indication: BREAST CANCER
     Dosage: 500 MG/M2
     Route: 065
     Dates: start: 20130204
  5. EPIRUBICIN HYDROCHLORIDE. [Concomitant]
     Active Substance: EPIRUBICIN HYDROCHLORIDE
     Indication: BREAST CANCER
     Dosage: 100 MG/M2
     Route: 065
     Dates: start: 20130204
  6. DEXAMETHASONE. [Concomitant]
     Active Substance: DEXAMETHASONE
     Indication: BREAST CANCER
     Dosage: 10 MG
     Route: 065
  7. DEXAMETHASONE. [Concomitant]
     Active Substance: DEXAMETHASONE
     Dosage: 8MG
     Route: 065

REACTIONS (27)
  - Generalised oedema [Fatal]
  - Pulmonary oedema [Fatal]
  - Febrile neutropenia [Recovering/Resolving]
  - Volume blood decreased [Unknown]
  - Hypoalbuminaemia [Unknown]
  - Hypercapnia [Unknown]
  - Multiple organ dysfunction syndrome [Fatal]
  - Acute respiratory distress syndrome [Fatal]
  - Dyspnoea exertional [Fatal]
  - Feeding disorder [Unknown]
  - Hypoxia [Unknown]
  - Hyponatraemia [Unknown]
  - Weight increased [Fatal]
  - Sepsis [Unknown]
  - Gastrointestinal oedema [Fatal]
  - Disseminated intravascular coagulation [Fatal]
  - Acidosis [Fatal]
  - Oliguria [Unknown]
  - Hypotension [Unknown]
  - Decreased appetite [Fatal]
  - Oral disorder [Unknown]
  - Pulmonary congestion [Unknown]
  - Pleural effusion [Fatal]
  - Hepatic failure [Fatal]
  - Ileus [Fatal]
  - Prerenal failure [Unknown]
  - Pyrexia [Unknown]

NARRATIVE: CASE EVENT DATE: 2013
